FAERS Safety Report 7145349-7 (Version None)
Quarter: 2010Q4

REPORT INFORMATION
  Report Type: 
  Country: None (occurrence: None)
  Receive Date: 20101208
  Receipt Date: 20101202
  Transmission Date: 20110411
  Serious: Yes (Hospitalization)
  Sender: FDA-Public Use
  Company Number: US-B.I. PHARMACEUTICALS,INC./RIDGEFIELD-2010-BP-13629BP

PATIENT
  Sex: Female

DRUGS (2)
  1. SPIRIVA [Suspect]
     Indication: ASTHMA
     Dosage: 18 MCG
     Route: 055
     Dates: start: 20100804
  2. PREDNISONE [Concomitant]
     Indication: ASTHMA
     Dosage: 60 MG
     Route: 048
     Dates: start: 19900101, end: 20101101

REACTIONS (4)
  - ADRENAL DISORDER [None]
  - FALL [None]
  - LOSS OF CONSCIOUSNESS [None]
  - WRIST FRACTURE [None]
